FAERS Safety Report 20222911 (Version 1)
Quarter: 2021Q4

REPORT INFORMATION
  Report Type: Spontaneous
  Country: NO (occurrence: NO)
  Receive Date: 20211223
  Receipt Date: 20211223
  Transmission Date: 20220303
  Serious: Yes (Life-Threatening, Hospitalization, Disabling, Other)
  Sender: FDA-Public Use
  Company Number: None

PATIENT
  Age: 30 Year
  Sex: Male
  Weight: 76 kg

DRUGS (1)
  1. NEURONTIN [Suspect]
     Active Substance: GABAPENTIN
     Indication: Neuralgia
     Dosage: 1800 MG, 3X/DAY (EVERY 8 HOURS)
     Route: 048
     Dates: start: 20200801, end: 202102

REACTIONS (12)
  - Prescribed overdose [Unknown]
  - Nausea [Recovered/Resolved with Sequelae]
  - Gait disturbance [Not Recovered/Not Resolved]
  - Blood urine present [Unknown]
  - Acute kidney injury [Unknown]
  - Mental impairment [Unknown]
  - Migraine [Unknown]
  - Cognitive disorder [Unknown]
  - Chills [Unknown]
  - Mental disorder [Unknown]
  - Hypokinesia [Unknown]
  - Condition aggravated [Unknown]

NARRATIVE: CASE EVENT DATE: 20200901
